FAERS Safety Report 8009366-7 (Version None)
Quarter: 2011Q4

REPORT INFORMATION
  Report Type: 
  Country: None (occurrence: None)
  Receive Date: 20111227
  Receipt Date: 20111214
  Transmission Date: 20120403
  Serious: Yes (Other)
  Sender: FDA-Public Use
  Company Number: US-BRISTOL-MYERS SQUIBB COMPANY-15565849

PATIENT
  Age: 64 Year
  Sex: Male
  Weight: 83 kg

DRUGS (13)
  1. DASATINIB [Suspect]
     Indication: PROSTATE CANCER
     Dosage: NO OF COURSE:5
     Route: 048
     Dates: start: 20101115
  2. PREDNISONE TAB [Suspect]
     Indication: PROSTATE CANCER
     Dosage: NO OF COURSE:5 5MG
     Route: 048
     Dates: start: 20101115
  3. DEXAMETHASONE [Concomitant]
     Dates: start: 20101114
  4. HYDROCHLOROTHIAZIDE [Concomitant]
     Dosage: TABS AS NEEDED
     Route: 048
     Dates: start: 20100616
  5. DOCETAXEL [Suspect]
     Indication: PROSTATE CANCER
     Route: 042
     Dates: start: 20101115, end: 20110526
  6. BLINDED: PLACEBO [Suspect]
     Indication: PROSTATE CANCER
     Route: 048
     Dates: start: 20101115
  7. ZOMETA [Concomitant]
     Dosage: LAST DOSE ON 10NOV2011
     Route: 042
     Dates: start: 20081201
  8. MULTI-VITAMIN [Concomitant]
     Dosage: 1DF=1 TAB
     Route: 048
     Dates: start: 20081201
  9. NEULASTA [Concomitant]
  10. ASPIRIN [Concomitant]
     Dates: start: 20101218
  11. CALCIUM + VITAMIN D [Concomitant]
  12. CALCIUM CARBONATE [Concomitant]
     Route: 048
     Dates: start: 20081201
  13. LUPRON [Concomitant]
     Dates: start: 20101208

REACTIONS (5)
  - HYPERTROPHIC CARDIOMYOPATHY [None]
  - METASTATIC SQUAMOUS CELL CARCINOMA [None]
  - RASH [None]
  - TELANGIECTASIA [None]
  - ERYTHEMA [None]
